FAERS Safety Report 5466654-6 (Version None)
Quarter: 2007Q3

REPORT INFORMATION
  Report Type: 
  Country: None (occurrence: None)
  Receive Date: 20070921
  Receipt Date: 20070921
  Transmission Date: 20080115
  Serious: Yes (Other)
  Sender: FDA-Public Use
  Company Number: None

PATIENT
  Age: 46 Year
  Sex: Female

DRUGS (1)
  1. ARIXTRA [Suspect]

REACTIONS (2)
  - ANTIPHOSPHOLIPID SYNDROME [None]
  - THROMBOCYTOPENIA [None]
